FAERS Safety Report 8886424 (Version 1)
Quarter: 2012Q4

REPORT INFORMATION
  Report Type: 
  Country: JP (occurrence: JP)
  Receive Date: 20121105
  Receipt Date: 20121105
  Transmission Date: 20130627
  Serious: Yes (Other)
  Sender: FDA-Public Use
  Company Number: JP-GLAXOSMITHKLINE-B0811722A

PATIENT
  Age: 57 Year
  Sex: Female

DRUGS (5)
  1. SERETIDE [Suspect]
     Indication: ASTHMA
     Dosage: 500MCG Twice per day
     Route: 055
     Dates: start: 20110926
  2. MUCOSTA [Concomitant]
     Route: 065
  3. SINGULAIR [Concomitant]
     Indication: ASTHMA
     Dosage: 10MG Per day
     Route: 048
     Dates: start: 20110926
  4. EBASTEL [Concomitant]
     Indication: RHINITIS ALLERGIC
     Dosage: 10MG Per day
     Route: 048
     Dates: start: 20110926
  5. METHISTA [Concomitant]
     Indication: ASTHMA
     Dosage: 500MG Twice per day
     Route: 048
     Dates: start: 20110926

REACTIONS (1)
  - Oropharyngeal blistering [Recovering/Resolving]
